FAERS Safety Report 17784841 (Version 1)
Quarter: 2020Q2

REPORT INFORMATION
  Report Type: Spontaneous
  Country: US (occurrence: US)
  Receive Date: 20200513
  Receipt Date: 20200513
  Transmission Date: 20200714
  Serious: Yes (Hospitalization)
  Sender: FDA-Public Use
  Company Number: None

PATIENT
  Age: 56 Year
  Sex: Male

DRUGS (1)
  1. WARFARIN (WARFARIN NA (EXELAN) 5MG TAB) [Suspect]
     Active Substance: WARFARIN SODIUM
     Indication: DEEP VEIN THROMBOSIS
     Dates: start: 20151030

REACTIONS (4)
  - Packed red blood cell transfusion [None]
  - Anticoagulation drug level above therapeutic [None]
  - Blood loss anaemia [None]
  - Gastroduodenal haemorrhage [None]

NARRATIVE: CASE EVENT DATE: 20200102
